FAERS Safety Report 7513628-7 (Version None)
Quarter: 2011Q2

REPORT INFORMATION
  Report Type: 
  Country: None (occurrence: None)
  Receive Date: 20110531
  Receipt Date: 20110526
  Transmission Date: 20111010
  Serious: Yes (Other)
  Sender: FDA-Public Use
  Company Number: US-BAYER-2011-045526

PATIENT
  Age: 22 Month
  Sex: Female
  Weight: 13.152 kg

DRUGS (1)
  1. MAGNEVIST [Suspect]
     Indication: NUCLEAR MAGNETIC RESONANCE IMAGING BRAIN
     Dosage: 2 ML, ONCE
     Route: 042
     Dates: start: 20110525, end: 20110525

REACTIONS (2)
  - RASH [None]
  - URTICARIA [None]
